FAERS Safety Report 11076702 (Version 2)
Quarter: 2015Q2

REPORT INFORMATION
  Report Type: Spontaneous
  Country: IL (occurrence: IL)
  Receive Date: 20150429
  Receipt Date: 20150520
  Transmission Date: 20150821
  Serious: Yes (Death, Hospitalization, Other)
  Sender: FDA-Public Use
  Company Number: IL-TAKEDA-2015TUS005481

PATIENT
  Age: 73 Year
  Sex: Female

DRUGS (2)
  1. ENTYVIO [Suspect]
     Active Substance: VEDOLIZUMAB
     Indication: CROHN^S DISEASE
     Dosage: UNK
     Route: 042
     Dates: start: 201502
  2. CORTICOSTEROIDS [Concomitant]
     Active Substance: CORTICOSTEROID NOS

REACTIONS (5)
  - Duodenal ulcer perforation [Fatal]
  - Abdominal abscess [Unknown]
  - Fistula [Unknown]
  - Multi-organ failure [Fatal]
  - Sepsis [Fatal]

NARRATIVE: CASE EVENT DATE: 201502
